FAERS Safety Report 7325142-2 (Version None)
Quarter: 2011Q1

REPORT INFORMATION
  Report Type: 
  Country: None (occurrence: None)
  Receive Date: 20110302
  Receipt Date: 20110223
  Transmission Date: 20110831
  Serious: Yes (Hospitalization, Other)
  Sender: FDA-Public Use
  Company Number: US-ASTRAZENECA-2007UW02138

PATIENT
  Age: 601 Month
  Sex: Female
  Weight: 104.3 kg

DRUGS (39)
  1. ABILIFY [Concomitant]
  2. LISINOPRIL [Concomitant]
     Route: 048
     Dates: start: 20080104
  3. SEROQUEL [Suspect]
     Indication: ANXIETY
     Dosage: 100-900 MG
     Route: 048
     Dates: start: 20020101, end: 20070420
  4. SEROQUEL [Suspect]
     Indication: SLEEP DISORDER
     Dosage: 100-900 MG
     Route: 048
     Dates: start: 20020101, end: 20070420
  5. SEROQUEL [Suspect]
     Dosage: 50 MG-300 MG
     Route: 048
     Dates: start: 20020930
  6. SEROQUEL [Suspect]
     Dosage: 50 MG-300 MG
     Route: 048
     Dates: start: 20020930
  7. CELEXA [Concomitant]
     Indication: DEPRESSION
     Dosage: 60 MG (CELEXA 40 MG AND 20 MG) QAM
     Dates: start: 20020502
  8. SEROQUEL [Suspect]
     Indication: THINKING ABNORMAL
     Dosage: 100-900 MG
     Route: 048
     Dates: start: 20020101, end: 20070420
  9. SEROQUEL [Suspect]
     Dosage: 50 MG-300 MG
     Route: 048
     Dates: start: 20020930
  10. SEROQUEL [Suspect]
     Route: 048
     Dates: start: 20020501
  11. SEROQUEL [Suspect]
     Route: 048
     Dates: start: 20020501
  12. METFORMIN [Concomitant]
     Dates: start: 20060922
  13. WELLBUTRIN [Concomitant]
     Dates: start: 20020810
  14. SEROQUEL [Suspect]
     Dosage: 100-900 MG QHS
     Route: 048
     Dates: start: 20021111
  15. RANITIDINE [Concomitant]
     Route: 048
     Dates: start: 20060825
  16. SEROQUEL [Suspect]
     Indication: BIPOLAR DISORDER
     Dosage: 100-900 MG
     Route: 048
     Dates: start: 20020101, end: 20070420
  17. HYDROXYZINE [Concomitant]
  18. XANAX [Concomitant]
     Indication: INSOMNIA
     Dosage: 1-2 MG 0.5 BID, 1 MG BID
     Route: 048
     Dates: start: 20020830, end: 20040301
  19. XANAX [Concomitant]
     Indication: ANXIETY
     Dosage: 1-2 MG 0.5 BID, 1 MG BID
     Route: 048
     Dates: start: 20020830, end: 20040301
  20. RESTORIL [Concomitant]
     Indication: SLEEP DISORDER
     Route: 048
     Dates: start: 20020830
  21. TRIAMTERENE AND HYDROCHLOROTHIAZIDE [Concomitant]
     Indication: HYPERTENSION
     Dosage: 37.5/25 1 QD
     Dates: start: 20021111
  22. GLYBURIDE [Concomitant]
     Dates: start: 20060922
  23. NEURONTIN [Concomitant]
     Route: 048
     Dates: start: 20060922
  24. VALPROIC ACID [Concomitant]
     Indication: AFFECTIVE DISORDER
     Dosage: 250 MG IV QHS
     Dates: start: 20020501
  25. SEROQUEL [Suspect]
     Dosage: 100-900 MG QHS
     Route: 048
     Dates: start: 20021111
  26. SEROQUEL [Suspect]
     Dosage: 100-900 MG QHS
     Route: 048
     Dates: start: 20021111
  27. SEROQUEL [Suspect]
     Dosage: 50 MG-300 MG
     Route: 048
     Dates: start: 20020930
  28. PROZAC [Concomitant]
  29. SEROQUEL [Suspect]
     Dosage: 100-900 MG QHS
     Route: 048
     Dates: start: 20021111
  30. SEROQUEL [Suspect]
     Dosage: 50 MG-300 MG
     Route: 048
     Dates: start: 20020930
  31. SEROQUEL [Suspect]
     Route: 048
     Dates: start: 20020501
  32. SEROQUEL [Suspect]
     Route: 048
     Dates: start: 20020501
  33. LORTAB [Concomitant]
     Dosage: 5 / 500 MG ONE TO TWO TABLETS P.O. Q 4 - 6 HOURS P.R.N.
     Dates: start: 20060825
  34. SEROQUEL [Suspect]
     Indication: DEPRESSION
     Dosage: 100-900 MG
     Route: 048
     Dates: start: 20020101, end: 20070420
  35. SEROQUEL [Suspect]
     Dosage: 100-900 MG QHS
     Route: 048
     Dates: start: 20021111
  36. SEROQUEL [Suspect]
     Route: 048
     Dates: start: 20020501
  37. CYMBALTA [Concomitant]
  38. ELAVIL [Concomitant]
     Dosage: 25-50 MG
     Route: 048
     Dates: start: 20020823
  39. ASPIRIN [Concomitant]
     Route: 048
     Dates: start: 20060825

REACTIONS (15)
  - LOSS OF CONSCIOUSNESS [None]
  - MUSCLE SPASMS [None]
  - MYOFASCIAL PAIN SYNDROME [None]
  - SYNCOPE [None]
  - INTERVERTEBRAL DISC DISORDER [None]
  - TYPE 2 DIABETES MELLITUS [None]
  - HYPERTENSION [None]
  - RADICULOPATHY [None]
  - INTERVERTEBRAL DISC PROTRUSION [None]
  - DIZZINESS [None]
  - MUSCULOSKELETAL PAIN [None]
  - ARTHRALGIA [None]
  - PAIN [None]
  - VISION BLURRED [None]
  - BACK PAIN [None]
